FAERS Safety Report 9094726 (Version 2)
Quarter: 2013Q3

REPORT INFORMATION
  Report Type: Spontaneous
  Country: US (occurrence: US)
  Receive Date: 20130220
  Receipt Date: 20130722
  Transmission Date: 20140515
  Serious: No
  Sender: FDA-Public Use
  Company Number: US-BIOGENIDEC-2013BI013826

PATIENT
  Sex: Female

DRUGS (1)
  1. TYSABRI [Suspect]
     Indication: MULTIPLE SCLEROSIS
     Route: 042
     Dates: start: 20111012

REACTIONS (13)
  - Emotional distress [Not Recovered/Not Resolved]
  - Crying [Not Recovered/Not Resolved]
  - Mobility decreased [Unknown]
  - Irritability [Unknown]
  - Nuclear magnetic resonance imaging abnormal [Unknown]
  - Depression [Unknown]
  - Anxiety [Unknown]
  - Stress [Unknown]
  - Fall [Recovered/Resolved]
  - Emotional disorder [Unknown]
  - Frustration [Unknown]
  - Cardiac disorder [Unknown]
  - Headache [Not Recovered/Not Resolved]
